FAERS Safety Report 10149380 (Version 2)
Quarter: 2014Q2

REPORT INFORMATION
  Report Type: Spontaneous
  Country: US (occurrence: US)
  Receive Date: 20140502
  Receipt Date: 20140502
  Transmission Date: 20141212
  Serious: Yes (Other)
  Sender: FDA-Public Use
  Company Number: US-ASTRAZENECA-2013SE68048

PATIENT
  Age: 62 Year
  Sex: Female
  Weight: 47.2 kg

DRUGS (3)
  1. ENTOCORT EC [Suspect]
     Indication: COLITIS MICROSCOPIC
     Route: 048
     Dates: start: 20130905
  2. ENTOCORT EC [Suspect]
     Indication: COLITIS MICROSCOPIC
     Route: 048
  3. APRISO [Concomitant]
     Indication: COLITIS

REACTIONS (6)
  - Tendonitis [Unknown]
  - Skin disorder [Not Recovered/Not Resolved]
  - Diarrhoea [Not Recovered/Not Resolved]
  - Colitis [Unknown]
  - Off label use [Not Recovered/Not Resolved]
  - Off label use [Unknown]
